FAERS Safety Report 9801712 (Version 2)
Quarter: 2014Q1

REPORT INFORMATION
  Report Type: Report from Study
  Country: US (occurrence: US)
  Receive Date: 20140107
  Receipt Date: 20140107
  Transmission Date: 20141002
  Serious: Yes (Hospitalization)
  Sender: FDA-Public Use
  Company Number: US-ONYX-2013-1846

PATIENT
  Age: 69 Year
  Sex: Male
  Weight: 94.89 kg

DRUGS (3)
  1. CARFILZOMIB [Suspect]
     Indication: PLASMA CELL MYELOMA
     Route: 042
     Dates: start: 20131105, end: 20131105
  2. CARFILZOMIB [Suspect]
     Route: 042
     Dates: start: 20131106, end: 20131106
  3. MELPHALAN [Concomitant]
     Indication: PLASMA CELL MYELOMA
     Route: 042
     Dates: start: 20131106, end: 20131106

REACTIONS (1)
  - Atrial fibrillation [Recovered/Resolved]
